FAERS Safety Report 4700528-0 (Version None)
Quarter: 2005Q2

REPORT INFORMATION
  Report Type: 
  Country: None (occurrence: None)
  Receive Date: 20050627
  Receipt Date: 20050627
  Transmission Date: 20051028
  Serious: Yes (Disabling)
  Sender: FDA-Public Use
  Company Number: None

PATIENT
  Age: 58 Year
  Sex: Male
  Weight: 68.0396 kg

DRUGS (1)
  1. VIAGRA [Suspect]
     Dosage: ORAL
     Route: 048
     Dates: start: 20031025, end: 20050619

REACTIONS (1)
  - VISION BLURRED [None]
